FAERS Safety Report 25687897 (Version 1)
Quarter: 2025Q3

REPORT INFORMATION
  Report Type: Spontaneous
  Country: EU (occurrence: EU)
  Receive Date: 20250817
  Receipt Date: 20250817
  Transmission Date: 20251021
  Serious: Yes (Other)
  Sender: JOHNSON AND JOHNSON
  Company Number: None

PATIENT
  Age: 6 Year
  Sex: Male
  Weight: 23 kg

DRUGS (3)
  1. RISPERDAL [Suspect]
     Active Substance: RISPERIDONE
     Indication: Medication error
     Dosage: 17.5 ML/DAY
     Route: 048
     Dates: start: 20250524, end: 20250525
  2. RISPERDAL [Suspect]
     Active Substance: RISPERIDONE
  3. RIFAMPIN [Suspect]
     Active Substance: RIFAMPIN
     Indication: Tuberculosis

REACTIONS (4)
  - Wrong drug [Recovered/Resolved]
  - Extrapyramidal disorder [Recovered/Resolved]
  - Hypotonia [Recovered/Resolved]
  - Facial spasm [Recovered/Resolved]

NARRATIVE: CASE EVENT DATE: 20250524
